FAERS Safety Report 8488349-7 (Version None)
Quarter: 2012Q3

REPORT INFORMATION
  Report Type: 
  Country: None (occurrence: None)
  Receive Date: 20120705
  Receipt Date: 20120627
  Transmission Date: 20120928
  Serious: Yes (Hospitalization)
  Sender: FDA-Public Use
  Company Number: IT-JNJFOC-20110104827

PATIENT
  Sex: Female
  Weight: 71 kg

DRUGS (14)
  1. REMICADE [Suspect]
     Route: 042
     Dates: start: 20101209
  2. LANSOPRAZOLE [Concomitant]
     Indication: GASTROINTESTINAL DISORDER THERAPY
     Route: 048
  3. REMICADE [Suspect]
     Route: 042
     Dates: start: 20090613
  4. REMICADE [Suspect]
     Route: 042
     Dates: start: 20101015
  5. REMICADE [Suspect]
     Route: 042
     Dates: start: 20100505
  6. MESALAMINE [Concomitant]
     Route: 054
  7. REMICADE [Suspect]
     Route: 042
     Dates: start: 20091103
  8. REMICADE [Suspect]
     Route: 042
     Dates: start: 20100107
  9. REMICADE [Suspect]
     Route: 042
     Dates: start: 20090420
  10. REMICADE [Suspect]
     Route: 042
     Dates: start: 20090909
  11. REMICADE [Suspect]
     Indication: COLITIS ULCERATIVE
     Route: 042
     Dates: start: 20090518
  12. REMICADE [Suspect]
     Route: 042
     Dates: start: 20090406
  13. REMICADE [Suspect]
     Route: 042
     Dates: start: 20100304
  14. MESALAMINE [Concomitant]
     Indication: COLITIS ULCERATIVE
     Route: 048

REACTIONS (1)
  - TERATOMA [None]
